FAERS Safety Report 8267170-9 (Version None)
Quarter: 2012Q2

REPORT INFORMATION
  Report Type: 
  Country: None (occurrence: None)
  Receive Date: 20120409
  Receipt Date: 20120327
  Transmission Date: 20120825
  Serious: Yes (Hospitalization)
  Sender: FDA-Public Use
  Company Number: CA-AMGEN-CANSP2012020174

PATIENT
  Age: 50 Year
  Sex: Female

DRUGS (1)
  1. ENBREL [Suspect]
     Indication: RHEUMATOID ARTHRITIS
     Dosage: UNK
     Dates: start: 20070101, end: 20090401

REACTIONS (4)
  - PYREXIA [None]
  - DIARRHOEA [None]
  - HEART RATE INCREASED [None]
  - LOSS OF CONSCIOUSNESS [None]
